FAERS Safety Report 16112510 (Version 1)
Quarter: 2019Q1

REPORT INFORMATION
  Report Type: Spontaneous
  Country: US (occurrence: US)
  Receive Date: 20190325
  Receipt Date: 20190325
  Transmission Date: 20190418
  Serious: No
  Sender: FDA-Public Use
  Company Number: US-PFIZER INC-2019115596

PATIENT
  Age: 78 Year
  Sex: Female
  Weight: 67.13 kg

DRUGS (8)
  1. LYRICA [Suspect]
     Active Substance: PREGABALIN
     Indication: NEUROPATHY PERIPHERAL
     Dosage: 50 MG, UNK (1 PILL OF THE 50MG FOR 3 DAYS. THEN 2 PILLS FOR 3 DAYS AND THIS IS HER FIRST DAY OF TAK)
     Dates: start: 20190305
  2. KLOR-CON [Concomitant]
     Active Substance: POTASSIUM CHLORIDE
     Indication: BLOOD POTASSIUM ABNORMAL
     Dosage: 10 MEQ, 1X/DAY
     Route: 048
  3. CLONAZEPAM. [Concomitant]
     Active Substance: CLONAZEPAM
     Indication: ANXIETY
     Dosage: UNK UNK, 2X/DAY [1 TABLET TWICE A DAY, SHE ACTUALLY TAKES 1 AND 3/4]
  4. TRIUMEQ [Concomitant]
     Active Substance: ABACAVIR SULFATE\DOLUTEGRAVIR SODIUM\LAMIVUDINE
     Indication: HIV INFECTION
     Dosage: 1 DF, DAILY [600 MG ABACAVIR, 50 MG DOLUTEGRAVIR, 300 MG LAMIVUDINE]
     Route: 048
  5. LUNESTA [Concomitant]
     Active Substance: ESZOPICLONE
     Indication: SLEEP DISORDER
     Dosage: UNK, 1X/DAY [1/2 TABLET]
  6. LISINOPRIL/HCTZ [Concomitant]
     Active Substance: HYDROCHLOROTHIAZIDE\LISINOPRIL
     Indication: HYPERTENSION
     Dosage: 1 DF, 1X/DAY [LISINOPRIL 10 MG, HYDROCHLOROTHIAZIDE 12.5 MG]
     Route: 048
  7. HYDROCODONE [Concomitant]
     Active Substance: HYDROCODONE
     Indication: PAIN
     Dosage: 1 DF, 3X/DAY [5/325MG 1 TABLET 3 TIMES A DAY BY MOUTH]
     Route: 048
  8. LIPITOR [Concomitant]
     Active Substance: ATORVASTATIN CALCIUM
     Indication: BLOOD CHOLESTEROL ABNORMAL
     Dosage: 20 MG, 1X/DAY
     Route: 048

REACTIONS (7)
  - Vertigo [Unknown]
  - Feeling abnormal [Unknown]
  - Aphasia [Unknown]
  - Balance disorder [Not Recovered/Not Resolved]
  - Eye disorder [Unknown]
  - Drug effect incomplete [Unknown]
  - Drug effective for unapproved indication [Unknown]

NARRATIVE: CASE EVENT DATE: 20190305
